FAERS Safety Report 7374214-5 (Version None)
Quarter: 2011Q1

REPORT INFORMATION
  Report Type: 
  Country: None (occurrence: None)
  Receive Date: 20110317
  Receipt Date: 20110302
  Transmission Date: 20110831
  Serious: Yes (Hospitalization)
  Sender: FDA-Public Use
  Company Number: TCI2010A03339

PATIENT
  Sex: Female

DRUGS (22)
  1. CAFFEINE, SALICYLAMIDE, PARACETAMOL, PROMETHAZINE METHYLENE DISALICYLA [Concomitant]
  2. TAKEPRON OD TABLETS 15 (LANSOPRAZOLE) [Suspect]
     Indication: GASTRIC DISORDER
     Dosage: 15 MG (15 MG, 1 IN 1 D); PER ORAL; 15 MG, (15 MG, 1 IN 1 D), PER ORAL
     Route: 048
     Dates: start: 20090422, end: 20090622
  3. TAKEPRON OD TABLETS 15 (LANSOPRAZOLE) [Suspect]
     Indication: ABDOMINAL PAIN UPPER
     Dosage: 15 MG (15 MG, 1 IN 1 D); PER ORAL; 15 MG, (15 MG, 1 IN 1 D), PER ORAL
     Route: 048
     Dates: start: 20090422, end: 20090622
  4. TAKEPRON OD TABLETS 15 (LANSOPRAZOLE) [Suspect]
     Indication: GASTRIC DISORDER
     Dosage: 15 MG (15 MG, 1 IN 1 D); PER ORAL; 15 MG, (15 MG, 1 IN 1 D), PER ORAL
     Route: 048
     Dates: start: 20100113, end: 20100414
  5. TAKEPRON OD TABLETS 15 (LANSOPRAZOLE) [Suspect]
     Indication: ABDOMINAL PAIN UPPER
     Dosage: 15 MG (15 MG, 1 IN 1 D); PER ORAL; 15 MG, (15 MG, 1 IN 1 D), PER ORAL
     Route: 048
     Dates: start: 20100113, end: 20100414
  6. INDERAL [Concomitant]
  7. U-PAN (LORAZEPAM) [Concomitant]
  8. LENDORMIN D (BROTIZOLAM) [Concomitant]
  9. AMLODIN OD (AMLODIPINE BESILATE) [Concomitant]
  10. MORPHINE HYDROCHLORIDE [Concomitant]
  11. HOKUNALIN (TULOBUTEROL HYDROCHLORIDE) [Concomitant]
  12. PAXIL [Concomitant]
  13. TOUGHMAC E (ENZYMES NOS) [Concomitant]
  14. VOLTAREN SUPPO (DICLOFENAC SODIUM) [Concomitant]
  15. CRESTOR [Concomitant]
  16. MAGLAX (MAGNESIUM OXIDE) [Concomitant]
  17. SILECE (FLUNITRAZEPAM) [Concomitant]
  18. THEO-DUR [Concomitant]
  19. PURSENNID (SENNA ALEXANDRINA LEAF) [Concomitant]
  20. HALCION [Concomitant]
  21. ENALAPRIL MALEATE [Concomitant]
  22. SPIRIVA (TIOTROPIM BROMIDE) [Concomitant]

REACTIONS (6)
  - HYPOPROTEINAEMIA [None]
  - COLITIS COLLAGENOUS [None]
  - DIARRHOEA [None]
  - LARGE INTESTINAL ULCER [None]
  - DECREASED APPETITE [None]
  - OEDEMA PERIPHERAL [None]
